FAERS Safety Report 13766445 (Version 2)
Quarter: 2018Q3

REPORT INFORMATION
  Report Type: Report from Study
  Country: BR (occurrence: BR)
  Receive Date: 20170719
  Receipt Date: 20180813
  Transmission Date: 20181010
  Serious: Yes (Other)
  Sender: FDA-Public Use
  Company Number: PHHY2017BR105343

PATIENT
  Age: 70 Year
  Sex: Female
  Weight: 52 kg

DRUGS (3)
  1. ACLASTA [Suspect]
     Active Substance: ZOLEDRONIC ACID
     Indication: OSTEOPOROSIS
  2. ACLASTA [Suspect]
     Active Substance: ZOLEDRONIC ACID
     Indication: OSTEOPENIA
     Dosage: 1 DF (5 MG/100 ML), Q12MO
     Route: 042
     Dates: start: 20170713
  3. CALCIUM [Concomitant]
     Active Substance: CALCIUM
     Indication: PRODUCT USED FOR UNKNOWN INDICATION
     Route: 065

REACTIONS (10)
  - Thirst [Recovered/Resolved]
  - Pain [Recovered/Resolved]
  - Movement disorder [Recovered/Resolved]
  - Spinal pain [Not Recovered/Not Resolved]
  - Thyroid disorder [Unknown]
  - Cardiac disorder [Unknown]
  - Arthralgia [Unknown]
  - Diabetes mellitus [Unknown]
  - Memory impairment [Not Recovered/Not Resolved]
  - Oral discomfort [Recovered/Resolved]

NARRATIVE: CASE EVENT DATE: 20170713
